FAERS Safety Report 7353661-1 (Version None)
Quarter: 2011Q1

REPORT INFORMATION
  Report Type: 
  Country: None (occurrence: None)
  Receive Date: 20110315
  Receipt Date: 20110217
  Transmission Date: 20110831
  Serious: No
  Sender: FDA-Public Use
  Company Number: US-B.I. PHARMACEUTICALS,INC./RIDGEFIELD-2011-BP-06016BP

PATIENT
  Age: 70 Year
  Sex: Male

DRUGS (12)
  1. CRESTOR [Concomitant]
     Indication: BLOOD CHOLESTEROL
     Dosage: 10 MG
  2. HYDRO/APAP [Concomitant]
     Indication: ARTHRITIS
  3. SYMBICORT [Concomitant]
     Indication: DYSPNOEA
  4. DUONEB [Concomitant]
     Indication: DYSPNOEA
  5. COMBIVENT [Suspect]
     Indication: ASTHMA
     Dates: start: 20050101
  6. DIGOXIN [Concomitant]
     Indication: CARDIAC DISORDER
     Dosage: 0.125 MG
  7. CARDIZEM [Concomitant]
     Indication: CARDIAC DISORDER
     Dosage: 240 MG
  8. LASIX [Concomitant]
     Indication: FLUID RETENTION
     Dosage: 40 MG
  9. OXYGEN [Concomitant]
     Indication: DYSPNOEA
  10. THEOPHYLLINE-SR [Concomitant]
     Indication: DYSPNOEA
     Dosage: 300 MG
  11. CARDIOVEL [Concomitant]
     Indication: CARDIAC DISORDER
     Dosage: 12.5 MG
  12. POTASSIUM [Concomitant]
     Indication: CARDIAC DISORDER
     Dosage: 20 MG

REACTIONS (4)
  - ATRIAL FIBRILLATION [None]
  - DIABETES MELLITUS [None]
  - HAEMATURIA [None]
  - ASTHMA [None]
